FAERS Safety Report 21216884 (Version 1)
Quarter: 2022Q3

REPORT INFORMATION
  Report Type: Spontaneous
  Country: US (occurrence: None)
  Receive Date: 20220816
  Receipt Date: 20220816
  Transmission Date: 20221027
  Serious: No
  Sender: FDA-Public Use
  Company Number: US-ROCHE-2937790

PATIENT
  Sex: Female

DRUGS (1)
  1. ALECENSA [Suspect]
     Active Substance: ALECTINIB HYDROCHLORIDE
     Indication: Breast cancer
     Route: 048
     Dates: start: 202106

REACTIONS (4)
  - Dry skin [Unknown]
  - Dry skin [Unknown]
  - Dry skin [Unknown]
  - Off label use [Unknown]
